FAERS Safety Report 10064332 (Version 1)
Quarter: 2014Q2

REPORT INFORMATION
  Report Type: Spontaneous
  Country: US (occurrence: None)
  Receive Date: 20140407
  Receipt Date: 20140407
  Transmission Date: 20141212
  Serious: Yes (Other)
  Sender: FDA-Public Use
  Company Number: None

PATIENT
  Age: 66 Year
  Sex: Female
  Weight: 90.72 kg

DRUGS (1)
  1. DILTIAZEM ER [Suspect]
     Indication: SUPRAVENTRICULAR EXTRASYSTOLES
     Dosage: 30 PILLS, ONCE DAILY, TAKEN BY MOUTH
     Route: 048

REACTIONS (2)
  - Rash erythematous [None]
  - Product substitution issue [None]
